FAERS Safety Report 18233851 (Version 1)
Quarter: 2020Q3

REPORT INFORMATION
  Report Type: Spontaneous
  Country: FR (occurrence: FR)
  Receive Date: 20200904
  Receipt Date: 20200904
  Transmission Date: 20201103
  Serious: Yes (Hospitalization)
  Sender: FDA-Public Use
  Company Number: FR-TEVA-2020-FR-1822730

PATIENT
  Age: 89 Year
  Sex: Female
  Weight: 85 kg

DRUGS (12)
  1. AMIODARONE (CHLORHYDRATE D^) [Suspect]
     Active Substance: AMIODARONE HYDROCHLORIDE
     Indication: CARDIAC DISORDER
     Route: 048
  2. FUROSEMIDE. [Suspect]
     Active Substance: FUROSEMIDE
     Indication: HYPERTENSION
     Dosage: 40MG
     Route: 048
  3. DIFFU K [Suspect]
     Active Substance: POTASSIUM CHLORIDE
     Indication: HYPOKALAEMIA
     Route: 048
  4. PYOSTACINE 500 MG, COMPRIME PELLICULE SECABLE [Suspect]
     Active Substance: PRISTINAMYCIN
     Indication: HERPES ZOSTER
     Route: 048
     Dates: start: 20200713
  5. ZELITREX 500 MG, COMPRIME ENROBE [Suspect]
     Active Substance: VALACYCLOVIR HYDROCHLORIDE
     Indication: HERPES ZOSTER
     Route: 048
     Dates: start: 20200713
  6. LEVOTHYROX 100 MICROGRAMMES, COMPRIME SECABLE [Suspect]
     Active Substance: LEVOTHYROXINE
     Indication: THYROID DISORDER
     Route: 048
  7. STAGID 700 MG, COMPRIME SECABLE [Suspect]
     Active Substance: METFORMIN PAMOATE
     Indication: TYPE 2 DIABETES MELLITUS
     Route: 048
  8. LERCANIDIPINE (CHLORHYDRATE DE) [Suspect]
     Active Substance: LERCANIDIPINE HYDROCHLORIDE
     Indication: HYPERTENSION
     Route: 048
  9. RAMIPRIL. [Suspect]
     Active Substance: RAMIPRIL
     Indication: HYPERTENSION
     Dosage: 2.5MG
     Route: 048
  10. PREVISCAN 20 MG, COMPRIME SECABLE [Suspect]
     Active Substance: FLUINDIONE
     Indication: ATRIAL FIBRILLATION
     Dosage: 0.25 DOSAGE FORM
     Route: 048
     Dates: end: 20200713
  11. ESIDREX [Suspect]
     Active Substance: HYDROCHLOROTHIAZIDE
     Indication: HYPERTENSION
     Dosage: 0.5 DOSAGE FORM
     Route: 048
  12. AERIUS (DESLORATADINE) [Suspect]
     Active Substance: DESLORATADINE
     Indication: ANTIALLERGIC THERAPY
     Route: 048
     Dates: start: 20200713

REACTIONS (3)
  - Acute kidney injury [Recovered/Resolved]
  - Hyperkalaemia [Recovered/Resolved]
  - Hyponatraemia [Recovered/Resolved]

NARRATIVE: CASE EVENT DATE: 20200716
